FAERS Safety Report 13410235 (Version 1)
Quarter: 2017Q2

REPORT INFORMATION
  Report Type: Report from Study
  Country: None (occurrence: US)
  Receive Date: 20170406
  Receipt Date: 20170406
  Transmission Date: 20170830
  Serious: Yes (Hospitalization, Other)
  Sender: FDA-Public Use
  Company Number: US-ABBVIE-17K-163-1929713-00

PATIENT
  Age: 64 Year
  Sex: Female

DRUGS (1)
  1. HUMIRA [Suspect]
     Active Substance: ADALIMUMAB
     Indication: RHEUMATOID ARTHRITIS
     Route: 058

REACTIONS (8)
  - Back disorder [Unknown]
  - Impaired healing [Recovering/Resolving]
  - Traumatic spinal cord compression [Recovering/Resolving]
  - Malignant melanoma [Not Recovered/Not Resolved]
  - Fall [Unknown]
  - Cerebrospinal fluid leakage [Recovering/Resolving]
  - Spinal cord injury [Recovering/Resolving]
  - Fall [Unknown]

NARRATIVE: CASE EVENT DATE: 201612
